FAERS Safety Report 12003897 (Version 2)
Quarter: 2016Q1

REPORT INFORMATION
  Report Type: Spontaneous
  Country: US (occurrence: US)
  Receive Date: 20160204
  Receipt Date: 20160316
  Transmission Date: 20160526
  Serious: No
  Sender: FDA-Public Use
  Company Number: US-PFIZER INC-2016007024

PATIENT
  Age: 67 Year
  Sex: Female

DRUGS (1)
  1. XELJANZ [Suspect]
     Active Substance: TOFACITINIB CITRATE
     Indication: ARTHROPATHY
     Dosage: 5 MG, 2X/DAY
     Route: 048

REACTIONS (3)
  - Condition aggravated [Unknown]
  - Bronchitis [Unknown]
  - Infection [Unknown]

NARRATIVE: CASE EVENT DATE: 20151226
